FAERS Safety Report 4907320-2 (Version None)
Quarter: 2006Q1

REPORT INFORMATION
  Report Type: 
  Country: None (occurrence: None)
  Receive Date: 20060207
  Receipt Date: 20060103
  Transmission Date: 20060701
  Serious: Yes (Life-Threatening, Hospitalization)
  Sender: FDA-Public Use
  Company Number: M-06-0012

PATIENT
  Sex: Male
  Weight: 101.1521 kg

DRUGS (8)
  1. AMIODARONE [Suspect]
     Dosage: 200 MG, BID
  2. COREG TABLETS (GSK) [Suspect]
     Indication: CARDIAC DISORDER
     Dosage: SEE DOSAGE TEXT, PO
     Route: 048
     Dates: start: 20050805, end: 20050901
  3. AMLODIPINE [Suspect]
     Dosage: 5 MG
  4. LISINOPRIL [Suspect]
     Dosage: 20 MG
  5. FUROSEMIDE [Suspect]
     Dosage: 20 MG
  6. WARFARIN SODIUM [Suspect]
     Dosage: 1 MG
  7. ATORVASTATIN CALCIUM [Suspect]
     Dosage: 20 MG
  8. POTASSIUM SALT [Suspect]
     Dosage: 10 MEQ

REACTIONS (10)
  - ASTHENIA [None]
  - BLOOD PRESSURE SYSTOLIC DECREASED [None]
  - DIZZINESS [None]
  - DYSPNOEA [None]
  - HEADACHE [None]
  - HEART RATE DECREASED [None]
  - LOSS OF CONSCIOUSNESS [None]
  - NAUSEA [None]
  - POOR PERIPHERAL CIRCULATION [None]
  - VERTIGO [None]
